FAERS Safety Report 19424011 (Version 3)
Quarter: 2021Q4

REPORT INFORMATION
  Report Type: Report from Study
  Country: US (occurrence: US)
  Receive Date: 20210616
  Receipt Date: 20211221
  Transmission Date: 20220303
  Serious: Yes (Hospitalization, Other)
  Sender: FDA-Public Use
  Company Number: NVSC2021US127120

PATIENT
  Age: 63 Year
  Sex: Female

DRUGS (5)
  1. ENTRESTO [Suspect]
     Active Substance: SACUBITRIL\VALSARTAN
     Indication: Cardiac failure
     Dosage: 100 MG (49/51 MG), BID
     Route: 048
     Dates: start: 20210326
  2. ENTRESTO [Suspect]
     Active Substance: SACUBITRIL\VALSARTAN
     Dosage: 200 MG (97/103 MG), BID
     Route: 048
  3. FUROSEMIDE [Suspect]
     Active Substance: FUROSEMIDE
     Indication: Product used for unknown indication
     Dosage: 2 DF, QD (2 TAB IN MORNING)
     Route: 065
  4. METOLAZONE [Concomitant]
     Active Substance: METOLAZONE
     Indication: Product used for unknown indication
     Dosage: UNKQD (IN THE MORNING)
     Route: 065
  5. TORSEMIDE [Concomitant]
     Active Substance: TORSEMIDE
     Indication: Product used for unknown indication
     Dosage: 3 DOSAGE FORM, QD
     Route: 065

REACTIONS (15)
  - Oedema peripheral [Recovered/Resolved]
  - Cellulitis [Recovered/Resolved]
  - Loss of consciousness [Recovering/Resolving]
  - Cataract [Unknown]
  - Swelling [Recovering/Resolving]
  - Red blood cell count decreased [Unknown]
  - Malaise [Unknown]
  - Peripheral swelling [Recovered/Resolved]
  - Visual impairment [Unknown]
  - Depression [Unknown]
  - Hypokinesia [Unknown]
  - Skin ulcer [Recovering/Resolving]
  - Dry throat [Unknown]
  - Cough [Unknown]
  - Drug ineffective [Recovered/Resolved]

NARRATIVE: CASE EVENT DATE: 20210529
